FAERS Safety Report 22362748 (Version 1)
Quarter: 2023Q2

REPORT INFORMATION
  Report Type: Spontaneous
  Country: US (occurrence: US)
  Receive Date: 20230524
  Receipt Date: 20230524
  Transmission Date: 20230721
  Serious: No
  Sender: FDA-Public Use
  Company Number: US-SANOFI-01621853

PATIENT
  Sex: Female

DRUGS (1)
  1. LANTUS SOLOSTAR [Suspect]
     Active Substance: INSULIN GLARGINE
     Indication: Type 2 diabetes mellitus
     Dosage: 60 IU, QD

REACTIONS (6)
  - Confusional state [Unknown]
  - Headache [Unknown]
  - Agitation [Unknown]
  - Blood glucose abnormal [Unknown]
  - Product storage error [Unknown]
  - Inappropriate schedule of product administration [Unknown]
